FAERS Safety Report 9514698 (Version 2)
Quarter: 2014Q1

REPORT INFORMATION
  Report Type: Spontaneous
  Country: US (occurrence: None)
  Receive Date: 20130305
  Receipt Date: 20140306
  Transmission Date: 20141002
  Serious: Yes (Other)
  Sender: FDA-Public Use
  Company Number: 163-21880-12112046

PATIENT
  Age: 52 Year
  Sex: Male
  Weight: 84.82 kg

DRUGS (16)
  1. REVLIMID [Suspect]
     Indication: PLASMA CELL MYELOMA
     Dosage: 10 MG, 21 IN 21 D, PO
     Route: 048
     Dates: start: 20120830, end: 201210
  2. THALOMID [Suspect]
     Indication: PLASMA CELL MYELOMA
     Dosage: 100 MG, 1 IN 1 D, PO
     Route: 048
     Dates: start: 20120907
  3. ASA (ACETYLSALICYLIC ACID) (TABLETS) [Concomitant]
  4. ALLOPURINOL (ALLOPURINOL) (TABLETS) [Concomitant]
  5. VALTREX (VALACICLOVIR HYDROCHLORIDE) (TABLETS) [Concomitant]
  6. METOPROLOL TARTRATE (METOPROLOL TARTRATE) (TABLETS) (METOPROLOL TARTRATE) [Concomitant]
  7. PANTOPRAZOLE (PANTOPRAZOLE) (ENTERIC-COATED TABLETS) [Concomitant]
  8. BIAXIN (CLARITHROMYCIN) (TABLETS) [Concomitant]
  9. CARAFATGE (SUCRALFATE) (TABLETS) [Concomitant]
  10. DEXAMETHASONE (DEXAMETHASONE) (TABLETS) [Concomitant]
  11. DOCUSATE (DOCUSATE) (CAPSULES) [Concomitant]
  12. SEVELAMER CARBONATE (SEVELAMER CARBONATE) (TABLETS0 [Concomitant]
  13. ZOFRAN (ONDANSETRON HYDROCHLORIDE) (TABLETS) [Concomitant]
  14. TRANSFUSION (BLOOD TRANSFUSION, AUXILIARY PRODUCTS) [Concomitant]
  15. CIPROFLOXACIN HCL (CIPROFLOXACIN HYDROCHLORIDE) [Concomitant]
  16. FLUCONAZOLE [Concomitant]

REACTIONS (4)
  - Pancytopenia [None]
  - Thrombocytopenia [None]
  - Constipation [None]
  - Neuropathy peripheral [None]
